FAERS Safety Report 20186715 (Version 2)
Quarter: 2022Q1

REPORT INFORMATION
  Report Type: Other
  Country: CA (occurrence: CA)
  Receive Date: 20211215
  Receipt Date: 20220328
  Transmission Date: 20220423
  Serious: Yes (Other)
  Sender: FDA-Public Use
  Company Number: CA-APOTEX-2021AP046157

PATIENT
  Age: 49 Year
  Sex: Female
  Weight: 66 kg

DRUGS (2)
  1. TAMOXIFEN [Suspect]
     Active Substance: TAMOXIFEN
     Indication: Breast cancer metastatic
     Dosage: 20 MILLIGRAM, QD
     Route: 048
  2. TAMOXIFEN [Suspect]
     Active Substance: TAMOXIFEN
     Dosage: 20 MILLIGRAM, Q.O.D.
     Route: 048

REACTIONS (3)
  - Disease progression [Not Recovered/Not Resolved]
  - Uterine enlargement [Not Recovered/Not Resolved]
  - Drug ineffective [Not Recovered/Not Resolved]
